FAERS Safety Report 6115603-6 (Version None)
Quarter: 2009Q1

REPORT INFORMATION
  Report Type: 
  Country: None (occurrence: None)
  Receive Date: 20090313
  Receipt Date: 20090304
  Transmission Date: 20090719
  Serious: Yes (Other)
  Sender: FDA-Public Use
  Company Number: US-ELI_LILLY_AND_COMPANY-US200903001846

PATIENT
  Age: 43 Year
  Sex: Male

DRUGS (5)
  1. CYMBALTA [Suspect]
     Indication: DEPRESSION
     Dosage: 60 MG, UNK
     Route: 048
     Dates: start: 20080101
  2. PLAVIX [Concomitant]
     Dosage: 75 MG, UNK
  3. NOVOLOG [Concomitant]
  4. REBIF                              /00596808/ [Concomitant]
     Dosage: UNK, 3/W
  5. CORTICOSTEROIDS [Concomitant]
     Indication: MULTIPLE SCLEROSIS

REACTIONS (5)
  - BLOOD IRON INCREASED [None]
  - DRUG INEFFECTIVE [None]
  - HEPATIC ENZYME INCREASED [None]
  - HEPATIC STEATOSIS [None]
  - MASS [None]
